FAERS Safety Report 9136010 (Version 1)
Quarter: 2013Q1

REPORT INFORMATION
  Report Type: Spontaneous
  Country: US (occurrence: US)
  Receive Date: 20130304
  Receipt Date: 20130304
  Transmission Date: 20140127
  Serious: No
  Sender: FDA-Public Use
  Company Number: US-ABBOTT-12P-163-0971585-00

PATIENT
  Sex: Male

DRUGS (2)
  1. ANDROGEL 1% [Suspect]
     Indication: BLOOD TESTOSTERONE DECREASED
     Dosage: 2 PACKETS DAILY
     Route: 062
     Dates: start: 201208
  2. ANDROGEL 1% [Suspect]
     Dosage: 1 PACKET DAILY
     Route: 062

REACTIONS (1)
  - Blood test abnormal [Unknown]
